FAERS Safety Report 20741537 (Version 1)
Quarter: 2022Q2

REPORT INFORMATION
  Report Type: Spontaneous
  Country: FR (occurrence: FR)
  Receive Date: 20220422
  Receipt Date: 20220422
  Transmission Date: 20220721
  Serious: Yes (Other)
  Sender: FDA-Public Use
  Company Number: None

PATIENT
  Age: 37 Year
  Sex: Male

DRUGS (3)
  1. PREGABALIN [Suspect]
     Active Substance: PREGABALIN
     Dosage: 200 MG
  2. FENTANYL [Suspect]
     Active Substance: FENTANYL
     Dosage: 50 UG/HOUR
  3. FENTANYL [Suspect]
     Active Substance: FENTANYL
     Dosage: 100 UG/HOUR

REACTIONS (1)
  - Drug abuse [Not Recovered/Not Resolved]
